FAERS Safety Report 16031901 (Version 1)
Quarter: 2019Q1

REPORT INFORMATION
  Report Type: Spontaneous
  Country: IN (occurrence: IN)
  Receive Date: 20190304
  Receipt Date: 20190304
  Transmission Date: 20190418
  Serious: Yes (Hospitalization)
  Sender: FDA-Public Use
  Company Number: PHHY2019IN047378

PATIENT
  Age: 57 Year
  Sex: Male

DRUGS (2)
  1. REVOLADE [Suspect]
     Active Substance: ELTROMBOPAG
     Indication: LIVER DISORDER
     Dosage: 25 MG, QD
     Route: 048
     Dates: start: 20190202
  2. REVOLADE [Suspect]
     Active Substance: ELTROMBOPAG
     Indication: HEPATITIS C TEST NEGATIVE

REACTIONS (2)
  - Platelet count decreased [Not Recovered/Not Resolved]
  - Product use in unapproved indication [Unknown]

NARRATIVE: CASE EVENT DATE: 20190202
